FAERS Safety Report 8541990-5 (Version None)
Quarter: 2012Q3

REPORT INFORMATION
  Report Type: 
  Country: None (occurrence: None)
  Receive Date: 20120726
  Receipt Date: 20110926
  Transmission Date: 20120928
  Serious: No
  Sender: FDA-Public Use
  Company Number: US-ASTRAZENECA-2011SE58069

PATIENT
  Age: 57 Year
  Weight: 81.6 kg

DRUGS (8)
  1. ZOMIG [Suspect]
     Indication: MIGRAINE
     Route: 048
     Dates: start: 20000101
  2. SEROQUEL [Suspect]
     Indication: SLEEP DISORDER
     Dosage: 2 TABLETS AT NIGHT AND ADD 2 MORE AS REQUIRED
     Route: 048
  3. FIONAL [Concomitant]
     Indication: HEADACHE
  4. CARDAZAN [Concomitant]
     Indication: BLOOD CHOLESTEROL
  5. CENAFLAX [Concomitant]
     Indication: MUSCLE SPASMS
  6. SELEXTA [Concomitant]
     Indication: DEPRESSION
  7. CENAFLAX [Concomitant]
     Indication: MUSCLE TIGHTNESS
  8. CLONATEPAN [Concomitant]
     Indication: AGITATION

REACTIONS (3)
  - INCORRECT DOSE ADMINISTERED [None]
  - DIARRHOEA [None]
  - OFF LABEL USE [None]
